FAERS Safety Report 25110549 (Version 1)
Quarter: 2025Q1

REPORT INFORMATION
  Report Type: Report from Study
  Country: US (occurrence: US)
  Receive Date: 20250324
  Receipt Date: 20250324
  Transmission Date: 20250409
  Serious: Yes (Other)
  Sender: NOVARTIS
  Company Number: US-002147023-NVSC2025US047684

PATIENT
  Sex: Female

DRUGS (1)
  1. KESIMPTA [Suspect]
     Active Substance: OFATUMUMAB
     Indication: Multiple sclerosis
     Route: 058
     Dates: start: 20250315

REACTIONS (12)
  - Mental impairment [Unknown]
  - Multiple sclerosis [Unknown]
  - Brain injury [Unknown]
  - Fatigue [Recovering/Resolving]
  - Influenza [Unknown]
  - Feeling abnormal [Unknown]
  - Confusional state [Unknown]
  - Mobility decreased [Unknown]
  - Brain fog [Not Recovered/Not Resolved]
  - Cognitive disorder [Unknown]
  - Gait disturbance [Unknown]
  - Fear [Unknown]
